FAERS Safety Report 4578134-0 (Version None)
Quarter: 2005Q1

REPORT INFORMATION
  Report Type: 
  Country: None (occurrence: None)
  Receive Date: 20050209
  Receipt Date: 20050121
  Transmission Date: 20050727
  Serious: Yes (Life-Threatening)
  Sender: FDA-Public Use
  Company Number: 200510248GDS

PATIENT
  Age: 74 Year
  Sex: Female

DRUGS (10)
  1. CARDIOASPIRIN (ACETYLSALICYLIC ACID) [Suspect]
     Indication: ACUTE MYOCARDIAL INFARCTION
     Dosage: 100 MG, TOTAL DAILY, ORAL
     Route: 048
     Dates: start: 20050101, end: 20050128
  2. CARDIOASPIRIN (ACETYLSALICYLIC ACID) [Suspect]
     Indication: ANGIOPLASTY
     Dosage: 100 MG, TOTAL DAILY, ORAL
     Route: 048
     Dates: start: 20050101, end: 20050128
  3. CARDIOASPIRIN (ACETYLSALICYLIC ACID) [Suspect]
     Indication: STENT PLACEMENT
     Dosage: 100 MG, TOTAL DAILY, ORAL
     Route: 048
     Dates: start: 20050101, end: 20050128
  4. TICLID [Suspect]
     Indication: ACUTE MYOCARDIAL INFARCTION
     Dosage: 250 MG, BID, ORAL
     Route: 048
     Dates: start: 20050101, end: 20050123
  5. TICLID [Suspect]
     Indication: ANGIOPLASTY
     Dosage: 250 MG, BID, ORAL
     Route: 048
     Dates: start: 20050101, end: 20050123
  6. TICLID [Suspect]
     Indication: STENT PLACEMENT
     Dosage: 250 MG, BID, ORAL
     Route: 048
     Dates: start: 20050101, end: 20050123
  7. METOPROLOL TARTRATE [Concomitant]
  8. ALLOPURINOL [Concomitant]
  9. VALSARTAN [Concomitant]
  10. ATORVASTATIN [Concomitant]

REACTIONS (2)
  - ANAEMIA [None]
  - THROMBOTIC THROMBOCYTOPENIC PURPURA [None]
